FAERS Safety Report 18787604 (Version 1)
Quarter: 2021Q1

REPORT INFORMATION
  Report Type: Other
  Country: US (occurrence: US)
  Receive Date: 20210125
  Receipt Date: 20210125
  Transmission Date: 20210419
  Serious: Yes (Hospitalization)
  Sender: FDA-Public Use
  Company Number: US-ACORDA-ACO_164366_2020

PATIENT
  Age: 40 Year
  Sex: Female

DRUGS (1)
  1. AMPYRA [Suspect]
     Active Substance: DALFAMPRIDINE
     Indication: PRODUCT USED FOR UNKNOWN INDICATION
     Dosage: UNK, BID
     Route: 048
     Dates: end: 20200312

REACTIONS (4)
  - Malaise [Unknown]
  - Thrombosis [Unknown]
  - Arterial tortuosity syndrome [Unknown]
  - Therapy cessation [Unknown]

NARRATIVE: CASE EVENT DATE: 202002
